FAERS Safety Report 8578726 (Version 4)
Quarter: 2012Q4

REPORT INFORMATION
  Report Type: 
  Country: US (occurrence: US)
  Receive Date: 20120524
  Receipt Date: 20121004
  Transmission Date: 20130627
  Serious: Yes (Other)
  Sender: FDA-Public Use
  Company Number: US-ASTRAZENECA-2012SE32329

PATIENT
  Age: 39 Year
  Sex: Female
  Weight: 93 kg

DRUGS (12)
  1. SYMBICORT PMDI [Suspect]
     Indication: BRONCHITIS CHRONIC
     Dosage: UNKNOWN DOSE TWO TIMES A DAY
     Route: 055
     Dates: start: 2011
  2. SYMBICORT PMDI [Suspect]
     Indication: ASTHMA
     Dosage: UNKNOWN DOSE TWO TIMES A DAY
     Route: 055
     Dates: start: 2011
  3. SYMBICORT PMDI [Suspect]
     Indication: CHRONIC OBSTRUCTIVE PULMONARY DISEASE
     Dosage: UNKNOWN DOSE TWO TIMES A DAY
     Route: 055
     Dates: start: 2011
  4. SYMBICORT PMDI [Suspect]
     Indication: BRONCHITIS CHRONIC
     Dosage: UNKNOWN DOSE EVERY OTHER DAY
     Route: 055
  5. SYMBICORT PMDI [Suspect]
     Indication: ASTHMA
     Dosage: UNKNOWN DOSE EVERY OTHER DAY
     Route: 055
  6. SYMBICORT PMDI [Suspect]
     Indication: CHRONIC OBSTRUCTIVE PULMONARY DISEASE
     Dosage: UNKNOWN DOSE EVERY OTHER DAY
     Route: 055
  7. SYMBICORT PMDI [Suspect]
     Indication: BRONCHITIS CHRONIC
     Route: 055
     Dates: end: 20120921
  8. SYMBICORT PMDI [Suspect]
     Indication: ASTHMA
     Route: 055
     Dates: end: 20120921
  9. SYMBICORT PMDI [Suspect]
     Indication: CHRONIC OBSTRUCTIVE PULMONARY DISEASE
     Route: 055
     Dates: end: 20120921
  10. NEXIUM [Suspect]
     Route: 048
  11. ADVAIR [Concomitant]
  12. ALBUTEROL [Concomitant]
     Indication: BRONCHITIS

REACTIONS (22)
  - Brain injury [Unknown]
  - Syncope [Unknown]
  - Mobility decreased [Unknown]
  - Performance status decreased [Unknown]
  - Dyspnoea [Unknown]
  - Fatigue [Unknown]
  - Asthenia [Unknown]
  - Skin odour abnormal [Unknown]
  - Bronchial secretion retention [Unknown]
  - Respiratory tract infection [Unknown]
  - Adverse event [Unknown]
  - Bacterial infection [Unknown]
  - Feeling abnormal [Unknown]
  - Cardiac disorder [Unknown]
  - Hypoaesthesia [Unknown]
  - Pyrexia [Unknown]
  - Cough [Unknown]
  - Hypertension [Unknown]
  - Myalgia [Unknown]
  - Off label use [Unknown]
  - Intentional drug misuse [Unknown]
  - Drug dose omission [Unknown]
